FAERS Safety Report 5172435-3 (Version None)
Quarter: 2006Q4

REPORT INFORMATION
  Report Type: 
  Country: None (occurrence: None)
  Receive Date: 20061205
  Receipt Date: 20061114
  Transmission Date: 20070319
  Serious: Yes (Disabling, Other)
  Sender: FDA-Public Use
  Company Number: S06-FRA-04363-01

PATIENT
  Age: 84 Year
  Sex: Male
  Weight: 62 kg

DRUGS (5)
  1. MEMANTINE HCL [Suspect]
     Indication: DEMENTIA ALZHEIMER'S TYPE
     Dosage: 5 MG QD PO
     Route: 048
     Dates: start: 20051201, end: 20060201
  2. DILTIAZEM HYDROCHLORIDE [Concomitant]
  3. ASPIRIN [Concomitant]
  4. CITALOPRAM HYDROBROMIDE [Concomitant]
  5. ATARAX [Concomitant]

REACTIONS (4)
  - BEDRIDDEN [None]
  - DYSSTASIA [None]
  - GAIT DISTURBANCE [None]
  - SOMNOLENCE [None]
